FAERS Safety Report 11594718 (Version 2)
Quarter: 2015Q4

REPORT INFORMATION
  Report Type: Spontaneous
  Country: US (occurrence: US)
  Receive Date: 20151005
  Receipt Date: 20151104
  Transmission Date: 20160304
  Serious: Yes (Other)
  Sender: FDA-Public Use
  Company Number: US-CELGENE-USA-2015095275

PATIENT
  Age: 72 Year
  Sex: Female

DRUGS (3)
  1. REVLIMID [Suspect]
     Active Substance: LENALIDOMIDE
     Route: 048
     Dates: start: 201404, end: 20150913
  2. REVLIMID [Suspect]
     Active Substance: LENALIDOMIDE
     Indication: CALCIUM METABOLISM DISORDER
     Route: 048
     Dates: start: 201306
  3. REVLIMID [Suspect]
     Active Substance: LENALIDOMIDE
     Indication: PLASMA CELL MYELOMA
     Route: 048
     Dates: start: 20121017

REACTIONS (1)
  - Laceration [Unknown]

NARRATIVE: CASE EVENT DATE: 20150913
